FAERS Safety Report 17169928 (Version 2)
Quarter: 2019Q4

REPORT INFORMATION
  Report Type: Spontaneous
  Country: IN (occurrence: JP)
  Receive Date: 20191218
  Receipt Date: 20191223
  Transmission Date: 20200122
  Serious: Yes (Death, Other)
  Sender: FDA-Public Use
  Company Number: JP-BAYER-2019-230127

PATIENT
  Age: 65 Year
  Sex: Male

DRUGS (7)
  1. STIVARGA [Suspect]
     Active Substance: REGORAFENIB
     Indication: LYMPHANGIOSIS CARCINOMATOSA
     Dosage: 120MG DAILY, ADMINISTRATION FOR 21 DAYS, FOLLOWED BY 7 DAYS REST
     Route: 048
     Dates: start: 2016
  2. STIVARGA [Suspect]
     Active Substance: REGORAFENIB
     Indication: RECTAL CANCER
     Dosage: 120MG DAILY, ADMINISTRATION FOR 21 DAYS, FOLLOWED BY 7 DAYS REST
     Route: 048
     Dates: start: 2016
  3. OXYGEN. [Concomitant]
     Active Substance: OXYGEN
     Indication: DYSPNOEA
  4. STIVARGA [Suspect]
     Active Substance: REGORAFENIB
     Indication: RECTAL CANCER
     Dosage: 120MG DAILY, ADMINISTRATION FOR 21 DAYS, FOLLOWED BY 7 DAYS REST
     Route: 048
     Dates: start: 201606
  5. CANDESARTAN. [Concomitant]
     Active Substance: CANDESARTAN
     Indication: HYPERTENSION
     Dosage: 8 MG
     Dates: start: 2016
  6. STIVARGA [Suspect]
     Active Substance: REGORAFENIB
     Indication: RECTAL CANCER
     Dosage: 120MG DAILY, ADMINISTRATION FOR 18 DAYS
     Route: 048
     Dates: start: 2016
  7. CANDESARTAN. [Concomitant]
     Active Substance: CANDESARTAN
     Indication: HYPERTENSION
     Dosage: 4 MG
     Dates: start: 2016

REACTIONS (3)
  - Hypoalbuminaemia [None]
  - Renal impairment [None]
  - Proteinuria [None]

NARRATIVE: CASE EVENT DATE: 2016
